FAERS Safety Report 9061199 (Version 2)
Quarter: 2013Q2

REPORT INFORMATION
  Report Type: Spontaneous
  Country: DE (occurrence: DE)
  Receive Date: 20130213
  Receipt Date: 20130501
  Transmission Date: 20140414
  Serious: Yes (Other)
  Sender: FDA-Public Use
  Company Number: DE-AMGEN-DEUSP2012047640

PATIENT
  Age: 60 Year
  Sex: Female

DRUGS (8)
  1. ENBREL [Suspect]
     Indication: RHEUMATOID ARTHRITIS
     Dosage: 50 MG, WEEKLY
     Route: 058
     Dates: start: 20090731, end: 20130308
  2. ENBREL [Interacting]
     Dosage: UNK
  3. MTX                                /00113801/ [Concomitant]
     Dosage: 10 MG, UNK
  4. PREDNISOLONE [Concomitant]
     Dosage: 2.5 MG, UNK
  5. L-THYROXIN [Concomitant]
     Dosage: UNK
  6. INSULIN [Concomitant]
     Dosage: 5X/DAY
  7. FOLIC ACID [Concomitant]
     Dosage: UNK
  8. CORTISONE [Interacting]
     Dosage: UNK

REACTIONS (9)
  - Drug interaction [Not Recovered/Not Resolved]
  - Rheumatoid arthritis [Not Recovered/Not Resolved]
  - Diabetic complication [Not Recovered/Not Resolved]
  - Hypoglycaemia [Not Recovered/Not Resolved]
  - Oropharyngeal pain [Not Recovered/Not Resolved]
  - Cough [Not Recovered/Not Resolved]
  - Drug ineffective [Not Recovered/Not Resolved]
  - Injection site erythema [Not Recovered/Not Resolved]
  - Injection site pruritus [Not Recovered/Not Resolved]
